FAERS Safety Report 11763301 (Version 1)
Quarter: 2015Q4

REPORT INFORMATION
  Report Type: Spontaneous
  Country: US (occurrence: US)
  Receive Date: 20151120
  Receipt Date: 20151120
  Transmission Date: 20160304
  Serious: No
  Sender: FDA-Public Use
  Company Number: US-ELI_LILLY_AND_COMPANY-US201303004379

PATIENT
  Age: 72 Year
  Sex: Female

DRUGS (1)
  1. FORTEO [Suspect]
     Active Substance: TERIPARATIDE
     Indication: OSTEOPOROSIS
     Dosage: 20 UG, QD
     Dates: start: 20130308

REACTIONS (9)
  - Rash [Unknown]
  - Arthralgia [Unknown]
  - Hyperventilation [Unknown]
  - Asthenia [Unknown]
  - Restlessness [Unknown]
  - Weight bearing difficulty [Unknown]
  - Respiratory rate increased [Unknown]
  - Tenderness [Unknown]
  - Nausea [Unknown]

NARRATIVE: CASE EVENT DATE: 20130310
